FAERS Safety Report 5787965-0 (Version None)
Quarter: 2008Q2

REPORT INFORMATION
  Report Type: 
  Country: None (occurrence: None)
  Receive Date: 20080623
  Receipt Date: 20080616
  Transmission Date: 20081010
  Serious: Yes (Death)
  Sender: FDA-Public Use
  Company Number: 163-21880-08051297

PATIENT
  Age: 66 Year
  Sex: Male

DRUGS (4)
  1. REVLIMID [Suspect]
     Indication: ACUTE MYELOID LEUKAEMIA
     Dosage: 10 MG, 1 IN 1 D, ORAL, 15 MG, 1 IN 1 D, ORAL
     Route: 048
     Dates: start: 20070822, end: 20070901
  2. REVLIMID [Suspect]
     Indication: MYELODYSPLASTIC SYNDROME
     Dosage: 10 MG, 1 IN 1 D, ORAL, 15 MG, 1 IN 1 D, ORAL
     Route: 048
     Dates: start: 20070822, end: 20070901
  3. REVLIMID [Suspect]
     Indication: ACUTE MYELOID LEUKAEMIA
     Dosage: 10 MG, 1 IN 1 D, ORAL, 15 MG, 1 IN 1 D, ORAL
     Route: 048
     Dates: start: 20070905, end: 20071127
  4. REVLIMID [Suspect]
     Indication: MYELODYSPLASTIC SYNDROME
     Dosage: 10 MG, 1 IN 1 D, ORAL, 15 MG, 1 IN 1 D, ORAL
     Route: 048
     Dates: start: 20070905, end: 20071127

REACTIONS (1)
  - UROSEPSIS [None]
